FAERS Safety Report 10228283 (Version 1)
Quarter: 2014Q2

REPORT INFORMATION
  Report Type: Spontaneous
  Country: BG (occurrence: BG)
  Receive Date: 20140610
  Receipt Date: 20140610
  Transmission Date: 20141212
  Serious: Yes (Other)
  Sender: FDA-Public Use
  Company Number: BG-ASTRAZENECA-2014SE39883

PATIENT
  Age: 65 Year
  Sex: Female

DRUGS (3)
  1. SYMBICORT [Suspect]
     Indication: ASTHMA
     Dosage: 160 MCG/4.5 MCG
     Route: 055
     Dates: start: 2012
  2. SYMBICORT [Suspect]
     Indication: ASTHMA
     Dosage: 160 MCG/4.5 MCG 2 INHALATIONS 2 TIMES A DAY
     Route: 055
     Dates: start: 2012
  3. SYMBICORT [Suspect]
     Indication: ASTHMA
     Dosage: 160 MCG/4.5 MCG ON DEMAND
     Route: 055
     Dates: start: 2012

REACTIONS (3)
  - Dyspnoea [Recovered/Resolved]
  - Wheezing [Recovered/Resolved]
  - Cough [Recovered/Resolved]
